FAERS Safety Report 4984112-X (Version None)
Quarter: 2006Q1

REPORT INFORMATION
  Report Type: 
  Country: None (occurrence: None)
  Receive Date: 20060302
  Receipt Date: 20050222
  Transmission Date: 20060701
  Serious: Yes (Other)
  Sender: FDA-Public Use
  Company Number: DPC-2005-00030

PATIENT
  Age: 54 Year
  Sex: Male

DRUGS (1)
  1. EVOXAC [Suspect]
     Indication: DRY MOUTH
     Dosage: 30 MG (TID), PER ORAL
     Route: 048

REACTIONS (1)
  - ARRHYTHMIA [None]
